FAERS Safety Report 15017712 (Version 1)
Quarter: 2018Q2

REPORT INFORMATION
  Report Type: Spontaneous
  Country: US (occurrence: US)
  Receive Date: 20180531
  Receipt Date: 20180531
  Transmission Date: 20180711
  Serious: Yes (Other)
  Sender: FDA-Public Use
  Company Number: None

PATIENT
  Age: 44 Year
  Sex: Male
  Weight: 67.5 kg

DRUGS (1)
  1. OXAYDO [Suspect]
     Active Substance: OXYCODONE HYDROCHLORIDE
     Indication: PAIN
     Dosage: ?          OTHER STRENGTH:PILL;QUANTITY:1 TABLET(S);?
     Route: 048

REACTIONS (2)
  - Agitation [None]
  - Headache [None]

NARRATIVE: CASE EVENT DATE: 20180401
